FAERS Safety Report 8979325 (Version 1)
Quarter: 2012Q4

REPORT INFORMATION
  Report Type: 
  Country: JP (occurrence: JP)
  Receive Date: 20121221
  Receipt Date: 20121221
  Transmission Date: 20130627
  Serious: Yes (Other)
  Sender: FDA-Public Use
  Company Number: JP-PFIZER INC-2012323144

PATIENT
  Age: 6 None
  Sex: Female

DRUGS (6)
  1. LIPITOR [Suspect]
     Indication: DYSLIPIDAEMIA
     Dosage: UNK
     Route: 048
  2. LANSOPRAZOLE [Suspect]
     Indication: ASTHMA BRONCHIAL
     Dosage: UNK
     Route: 048
  3. THEOPHYLLINE [Concomitant]
     Indication: ASTHMA BRONCHIAL
     Dosage: UNK
     Route: 048
  4. TULOBUTEROL HYDROCHLORIDE [Concomitant]
     Indication: ASTHMA BRONCHIAL
     Dosage: UNK
     Route: 048
  5. ALVESCO [Concomitant]
     Indication: ASTHMA BRONCHIAL
     Dosage: UNK
  6. TEPRENONE [Concomitant]
     Indication: REFLUX ESOPHAGITIS
     Dosage: UNK
     Route: 048

REACTIONS (1)
  - Colitis microscopic [Recovering/Resolving]
